FAERS Safety Report 8495348-8 (Version None)
Quarter: 2012Q3

REPORT INFORMATION
  Report Type: 
  Country: None (occurrence: None)
  Receive Date: 20120709
  Receipt Date: 20120702
  Transmission Date: 20120928
  Serious: Yes (Hospitalization)
  Sender: FDA-Public Use
  Company Number: US-BAYER-2012-066321

PATIENT
  Age: 32 Year
  Sex: Female
  Weight: 170 kg

DRUGS (13)
  1. XANAX [Concomitant]
     Indication: DEPRESSION
  2. BIAXIN [Concomitant]
     Indication: HELICOBACTER GASTRITIS
  3. FLAGYL [Concomitant]
  4. CELEXA [Concomitant]
     Indication: ANXIETY
     Dosage: 20 MG, ONCE
  5. YAZ [Suspect]
     Indication: OVARIAN CYST
  6. ALBUTEROL [Concomitant]
     Dosage: AS NEEDED
  7. METRONIDAZOLE [Concomitant]
  8. TETRACYCLINE [Concomitant]
     Indication: HELICOBACTER GASTRITIS
  9. CELEXA [Concomitant]
     Indication: DEPRESSION
  10. YAZ [Suspect]
     Indication: MENSTRUATION IRREGULAR
  11. XANAX [Concomitant]
     Indication: ANXIETY
     Dosage: 0.25 MG, AS NEEDED
  12. AYGESTIN [Concomitant]
     Dosage: 5 MG, UNK
  13. PROTONIX [Concomitant]

REACTIONS (1)
  - PULMONARY EMBOLISM [None]
